FAERS Safety Report 9872088 (Version 3)
Quarter: 2014Q1

REPORT INFORMATION
  Report Type: Report from Study
  Country: JP (occurrence: JP)
  Receive Date: 20140205
  Receipt Date: 20140320
  Transmission Date: 20141002
  Serious: Yes (Hospitalization)
  Sender: FDA-Public Use
  Company Number: JP-B.I. PHARMACEUTICALS,INC./RIDGEFIELD-2014-BI-04543GD

PATIENT
  Age: 64 Year
  Sex: Female

DRUGS (3)
  1. MICARDIS [Suspect]
     Indication: HYPERTENSION
     Dosage: 20 MG
     Route: 048
     Dates: start: 201301, end: 201307
  2. ANCARON [Concomitant]
     Indication: LOSS OF CONSCIOUSNESS
     Route: 048
     Dates: start: 2009
  3. LASIX [Concomitant]
     Indication: CARDIAC FAILURE
     Route: 048
     Dates: start: 2009

REACTIONS (1)
  - Ventricular tachycardia [Not Recovered/Not Resolved]
